FAERS Safety Report 8606993 (Version 3)
Quarter: 2013Q4

REPORT INFORMATION
  Report Type: Spontaneous
  Country: US (occurrence: US)
  Receive Date: 20120611
  Receipt Date: 20131204
  Transmission Date: 20140711
  Serious: No
  Sender: FDA-Public Use
  Company Number: US-ASTRAZENECA-2012SE35824

PATIENT
  Age: 18094 Day
  Sex: Female
  Weight: 100.7 kg

DRUGS (27)
  1. NEXIUM [Suspect]
     Indication: GASTROOESOPHAGEAL REFLUX DISEASE
     Dosage: TWICE A DAY
     Route: 048
  2. NEXIUM [Suspect]
     Indication: GASTROOESOPHAGEAL REFLUX DISEASE
     Dosage: DAILY
     Route: 048
     Dates: start: 2007, end: 2010
  3. NEXIUM [Suspect]
     Indication: GASTROOESOPHAGEAL REFLUX DISEASE
     Route: 048
     Dates: start: 20081219, end: 20090604
  4. PLAVIX [Concomitant]
  5. SOMA [Concomitant]
  6. SINEMET [Concomitant]
     Dosage: 25/100 THREE TIMES A DAY
  7. SEROQUEL [Concomitant]
  8. VENLAFAKINE [Concomitant]
  9. KLONOPIN [Concomitant]
  10. LORCET [Concomitant]
     Dosage: 10/450 FOUR TIMES A DAY
  11. LYRICA [Concomitant]
  12. JANUVIA [Concomitant]
  13. REQUIP [Concomitant]
  14. TRACODONE [Concomitant]
  15. METOCLOPRAMIDE [Concomitant]
     Dates: start: 20090604
  16. LORAZEPAM [Concomitant]
     Dates: start: 20090604
  17. CITALOPRAM [Concomitant]
     Dates: start: 20090604
  18. OMEPRAZOLE [Concomitant]
     Dates: start: 20090604
  19. ZETIA [Concomitant]
     Dates: start: 20090604
  20. THEOPHYLLINE [Concomitant]
     Dates: start: 20090604
  21. AMITRIPTYLINE [Concomitant]
     Dates: start: 20100107
  22. MORPHINE SR [Concomitant]
     Dates: start: 20100114
  23. MELOXICAM [Concomitant]
     Dates: start: 20100208
  24. FLUCONAZOLE [Concomitant]
     Dates: start: 20100427
  25. SIMVASTATIN [Concomitant]
     Dates: start: 20100427
  26. VENLAFAXINE [Concomitant]
     Dates: start: 20101208
  27. TRAMADOL HCL [Concomitant]
     Dates: start: 20100208

REACTIONS (8)
  - Osteoporosis [Unknown]
  - Multiple fractures [Unknown]
  - Ankle fracture [Unknown]
  - Bone density decreased [Unknown]
  - Chronic obstructive pulmonary disease [Unknown]
  - Diabetes mellitus [Unknown]
  - Fall [Unknown]
  - Depression [Unknown]
